FAERS Safety Report 9210121 (Version 1)
Quarter: 2013Q2

REPORT INFORMATION
  Report Type: Report from Study
  Country: NO (occurrence: NO)
  Receive Date: 20130404
  Receipt Date: 20130404
  Transmission Date: 20140414
  Serious: Yes (Other)
  Sender: FDA-Public Use
  Company Number: NO-TEVA-394114ISR

PATIENT
  Sex: Female

DRUGS (2)
  1. LEVETIRACETAM [Suspect]
     Indication: EPILEPSY
     Dosage: 2000 UNKNOWN DAILY; DAILY DOSE : 2000
  2. LAMOTRIGINE [Concomitant]
     Indication: EPILEPSY

REACTIONS (2)
  - Pregnancy [Recovered/Resolved]
  - Abortion induced [Unknown]
